FAERS Safety Report 7410163-1 (Version None)
Quarter: 2011Q2

REPORT INFORMATION
  Report Type: 
  Country: None (occurrence: None)
  Receive Date: 20110412
  Receipt Date: 20110407
  Transmission Date: 20111010
  Serious: Yes (Death, Other)
  Sender: FDA-Public Use
  Company Number: DE-PFIZER INC-2011073706

PATIENT
  Age: 45 Year
  Sex: Female

DRUGS (1)
  1. LYRICA [Suspect]
     Indication: TRIGEMINAL NEURALGIA
     Dosage: 150 MG, TWICE

REACTIONS (10)
  - ASPHYXIA [None]
  - CEREBRAL HAEMORRHAGE [None]
  - FALL [None]
  - DYSPHAGIA [None]
  - VOMITING [None]
  - CYANOSIS [None]
  - VERTIGO [None]
  - TRAUMATIC BRAIN INJURY [None]
  - HAEMATOMA [None]
  - DEATH [None]
